FAERS Safety Report 21291403 (Version 1)
Quarter: 2022Q3

REPORT INFORMATION
  Report Type: Spontaneous
  Country: IT (occurrence: IT)
  Receive Date: 20220903
  Receipt Date: 20220903
  Transmission Date: 20221027
  Serious: Yes (Other)
  Sender: FDA-Public Use
  Company Number: None

PATIENT
  Age: 69 Year
  Sex: Male
  Weight: 95 kg

DRUGS (9)
  1. ENTRESTO [Suspect]
     Active Substance: SACUBITRIL\VALSARTAN
     Indication: Cardiac failure
     Dosage: 100 MG, Q12H (51+49MG 2VV/DIE (ORE 8-20)
     Route: 048
  2. XARELTO [Suspect]
     Active Substance: RIVAROXABAN
     Indication: Atrial fibrillation
     Dosage: 20 MG, Q24H (20MG/DIE ORE 13)
     Route: 048
  3. ALDACTONE [Concomitant]
     Active Substance: SPIRONOLACTONE
     Indication: Product used for unknown indication
     Dosage: 25 MG, Q24H
     Route: 048
  4. DAPAGLIFLOZIN [Concomitant]
     Active Substance: DAPAGLIFLOZIN
     Indication: Product used for unknown indication
     Dosage: 10 MG, Q24H
     Route: 048
  5. METOPROLOL [Concomitant]
     Active Substance: METOPROLOL
     Indication: Product used for unknown indication
     Dosage: 75 MG, Q24H
     Route: 048
  6. LASIX [Concomitant]
     Active Substance: FUROSEMIDE
     Indication: Product used for unknown indication
     Dosage: 50 MG, Q24H
     Route: 048
  7. METFORMINA ALMUS [Concomitant]
     Indication: Product used for unknown indication
     Dosage: 500 MG, Q12H
     Route: 048
  8. ALLOPURINOL [Concomitant]
     Active Substance: ALLOPURINOL
     Indication: Product used for unknown indication
     Dosage: 300 MG, Q24H
     Route: 048
  9. CORDARONE [Concomitant]
     Active Substance: AMIODARONE HYDROCHLORIDE
     Indication: Product used for unknown indication
     Dosage: 200 MG, Q24H
     Route: 048

REACTIONS (2)
  - Rectal haemorrhage [Unknown]
  - Hypotension [Unknown]

NARRATIVE: CASE EVENT DATE: 20220630
